FAERS Safety Report 10780426 (Version 1)
Quarter: 2015Q1

REPORT INFORMATION
  Report Type: Spontaneous
  Country: US (occurrence: US)
  Receive Date: 20150210
  Receipt Date: 20150210
  Transmission Date: 20150721
  Serious: No
  Sender: FDA-Public Use
  Company Number: US-GLAXOSMITHKLINE-A1067874A

PATIENT

DRUGS (6)
  1. HYDROXYZINE [Concomitant]
     Active Substance: HYDROXYZINE\HYDROXYZINE HYDROCHLORIDE
  2. XELODA [Concomitant]
     Active Substance: CAPECITABINE
  3. ONDANSETRON [Concomitant]
     Active Substance: ONDANSETRON
  4. XELODA TABLET [Suspect]
     Active Substance: CAPECITABINE
     Indication: BREAST CANCER
     Dates: start: 20140117
  5. OXYCONTIN [Concomitant]
     Active Substance: OXYCODONE HYDROCHLORIDE
  6. TYKERB [Suspect]
     Active Substance: LAPATINIB DITOSYLATE
     Indication: BREAST CANCER
     Dosage: 1250 MG
     Route: 048
     Dates: start: 20140117

REACTIONS (10)
  - Dyspnoea [Unknown]
  - Oedema [Unknown]
  - Dehydration [Unknown]
  - Neoplasm [Not Recovered/Not Resolved]
  - Diarrhoea [Unknown]
  - Rash macular [Unknown]
  - Insomnia [Unknown]
  - Palmar-plantar erythrodysaesthesia syndrome [Unknown]
  - Weight decreased [Unknown]
  - Fatigue [Not Recovered/Not Resolved]

NARRATIVE: CASE EVENT DATE: 20140208
